FAERS Safety Report 7751549-5 (Version None)
Quarter: 2011Q3

REPORT INFORMATION
  Report Type: 
  Country: None (occurrence: None)
  Receive Date: 20110914
  Receipt Date: 20110908
  Transmission Date: 20111222
  Serious: Yes (Death, Life-Threatening, Hospitalization)
  Sender: FDA-Public Use
  Company Number: PHHY2011BE79853

PATIENT
  Age: 57 Year
  Sex: Male

DRUGS (2)
  1. DASATINIB [Concomitant]
     Dosage: 140 MG, DAILY
  2. IMATINIB MESYLATE [Suspect]
     Indication: CHRONIC MYELOID LEUKAEMIA
     Dosage: 600 MG, DAILY

REACTIONS (4)
  - LEUKAEMIA RECURRENT [None]
  - MULTI-ORGAN FAILURE [None]
  - FUNGAL INFECTION [None]
  - BACTERIAL SEPSIS [None]
